FAERS Safety Report 7830632-X (Version None)
Quarter: 2011Q4

REPORT INFORMATION
  Report Type: 
  Country: None (occurrence: None)
  Receive Date: 20111021
  Receipt Date: 20111018
  Transmission Date: 20120403
  Serious: Yes (Other)
  Sender: FDA-Public Use
  Company Number: US-ABBOTT-11P-163-0866412-00

PATIENT
  Sex: Female
  Weight: 54.48 kg

DRUGS (4)
  1. HUMIRA [Suspect]
     Dosage: PFS
     Dates: start: 20111001
  2. HUMIRA [Suspect]
     Indication: COLITIS ULCERATIVE
     Dates: start: 20101101, end: 20111001
  3. KARIVA [Concomitant]
     Indication: ORAL CONTRACEPTION
  4. SAVALA [Concomitant]
     Indication: DEPRESSION

REACTIONS (10)
  - BLOOD POTASSIUM DECREASED [None]
  - INJECTION SITE PAIN [None]
  - ENDOMETRIOSIS [None]
  - PRESYNCOPE [None]
  - VERTIGO [None]
  - ABDOMINAL PAIN [None]
  - NAUSEA [None]
  - TACHYCARDIA [None]
  - DEHYDRATION [None]
  - THERAPEUTIC RESPONSE UNEXPECTED [None]
